FAERS Safety Report 8274537-1 (Version None)
Quarter: 2012Q2

REPORT INFORMATION
  Report Type: 
  Country: None (occurrence: None)
  Receive Date: 20120411
  Receipt Date: 20120402
  Transmission Date: 20120825
  Serious: Yes (Other)
  Sender: FDA-Public Use
  Company Number: BR-ASTRAZENECA-2012SE02002

PATIENT
  Age: 79 Year
  Sex: Female
  Weight: 71 kg

DRUGS (5)
  1. SOMALGIN [Concomitant]
     Indication: CAROTID ARTERIOSCLEROSIS
     Dosage: UNKNOWN DOSE, DAILY
     Route: 048
     Dates: start: 20110401
  2. OMEPRAZOLE [Suspect]
     Indication: GASTRITIS PROPHYLAXIS
     Dosage: DAILY
     Route: 048
     Dates: start: 20110401
  3. ATENOLOL [Concomitant]
     Indication: HYPERTENSION
     Dosage: UNKNOWN DOSE, DAILY
     Route: 048
     Dates: start: 20110401
  4. ATACAND HCT [Suspect]
     Indication: HYPERTENSION
     Dosage: 16 MG / 2.5 MG, DAILY
     Route: 048
     Dates: start: 20110401, end: 20120108
  5. CRESTOR [Suspect]
     Indication: BLOOD CHOLESTEROL INCREASED
     Route: 048
     Dates: start: 20110401

REACTIONS (1)
  - OEDEMA PERIPHERAL [None]
